FAERS Safety Report 7235020-5 (Version None)
Quarter: 2011Q1

REPORT INFORMATION
  Report Type: 
  Country: None (occurrence: None)
  Receive Date: 20110120
  Receipt Date: 20110114
  Transmission Date: 20110831
  Serious: Yes (Hospitalization, Other)
  Sender: FDA-Public Use
  Company Number: DE-AMGEN-DEUSP2010009668

PATIENT

DRUGS (4)
  1. EPIRUBICIN [Concomitant]
     Indication: BREAST CANCER METASTATIC
     Dosage: 278 MG, UNK
     Dates: start: 20101026, end: 20101123
  2. CYCLOPHOSPHAMIDE [Concomitant]
     Indication: BREAST CANCER METASTATIC
  3. PACLITAXEL [Concomitant]
     Indication: BREAST CANCER METASTATIC
     Dosage: 418 UNK, UNK
     Route: 042
     Dates: start: 20101207
  4. NEULASTA [Suspect]
     Indication: CHEMOTHERAPY
     Dosage: 6 MG, UNK
     Route: 058
     Dates: start: 20101027, end: 20101208

REACTIONS (6)
  - GENERAL PHYSICAL HEALTH DETERIORATION [None]
  - LIMB DISCOMFORT [None]
  - C-REACTIVE PROTEIN DECREASED [None]
  - BLOOD LACTATE DEHYDROGENASE INCREASED [None]
  - RESPIRATORY TRACT INFECTION [None]
  - WHITE BLOOD CELL COUNT INCREASED [None]
